FAERS Safety Report 4371836-0 (Version None)
Quarter: 2004Q2

REPORT INFORMATION
  Report Type: 
  Country: None (occurrence: None)
  Receive Date: 20040602
  Receipt Date: 20040526
  Transmission Date: 20050107
  Serious: Yes (Hospitalization)
  Sender: FDA-Public Use
  Company Number: 2004215551US

PATIENT
  Age: 52 Year
  Sex: Female

DRUGS (2)
  1. CELEBREX [Suspect]
     Indication: ARTHRITIS
     Dosage: 200 MG, BID
     Dates: start: 20031201
  2. PREDNISONE [Concomitant]

REACTIONS (5)
  - ARTHROPOD BITE [None]
  - DRUG INEFFECTIVE [None]
  - FALL [None]
  - OEDEMA PERIPHERAL [None]
  - PAIN [None]
